FAERS Safety Report 5280571-6 (Version None)
Quarter: 2007Q1

REPORT INFORMATION
  Report Type: 
  Country: None (occurrence: None)
  Receive Date: 20061215
  Receipt Date: 20060809
  Transmission Date: 20070707
  Serious: Yes (Other)
  Sender: FDA-Public Use
  Company Number: HQWYE334210AUG06

PATIENT
  Age: 36 Year
  Sex: Female
  Weight: 43.58 kg

DRUGS (2)
  1. EFFEXOR XR [Suspect]
     Dosage: 225 MG 2X PER 1 DAY, ORAL
     Route: 048
     Dates: start: 20040101
  2. KLONOPIN [Concomitant]

REACTIONS (1)
  - HAEMOGLOBIN DECREASED [None]
